FAERS Safety Report 7423182-6 (Version None)
Quarter: 2011Q2

REPORT INFORMATION
  Report Type: 
  Country: None (occurrence: None)
  Receive Date: 20110413
  Receipt Date: 20110413
  Transmission Date: 20111010
  Serious: Yes (Hospitalization)
  Sender: FDA-Public Use
  Company Number: None

PATIENT
  Age: 33 Year
  Sex: Male
  Weight: 93.7 kg

DRUGS (2)
  1. CHLORPHENIRAMINE/DEXTROMETHORPHAN [Suspect]
     Dosage: 72 PILLS ONCE
     Dates: start: 20110407, end: 20110407
  2. GUAIFENESIN [Suspect]
     Dosage: 2 BOTTLES ONCE PO
     Route: 048

REACTIONS (3)
  - OVERDOSE [None]
  - SEDATION [None]
  - DISORIENTATION [None]
